FAERS Safety Report 20571863 (Version 1)
Quarter: 2022Q1

REPORT INFORMATION
  Report Type: Spontaneous
  Country: US (occurrence: None)
  Receive Date: 20220308
  Receipt Date: 20220308
  Transmission Date: 20220423
  Serious: No
  Sender: FDA-Public Use
  Company Number: None

PATIENT
  Sex: Female

DRUGS (1)
  1. STELARA [Suspect]
     Active Substance: USTEKINUMAB
     Indication: Polyarthritis
     Dosage: OTHER QUANTITY : 90MG/1ML;?OTHER FREQUENCY : EVERY 12 WEEKS;?
     Route: 058
     Dates: start: 20171210

REACTIONS (5)
  - Psoriasis [None]
  - Ear infection [None]
  - Therapy non-responder [None]
  - Therapy interrupted [None]
  - Insurance issue [None]
